FAERS Safety Report 9964827 (Version 2)
Quarter: 2014Q1

REPORT INFORMATION
  Report Type: Spontaneous
  Country: US (occurrence: US)
  Receive Date: 20140305
  Receipt Date: 20140312
  Transmission Date: 20141002
  Serious: Yes (Other)
  Sender: FDA-Public Use
  Company Number: US-TEVA-466944USA

PATIENT
  Age: 36 Year
  Sex: Female
  Weight: 88.53 kg

DRUGS (2)
  1. PLAN B ONE-STEP [Suspect]
     Indication: POST COITAL CONTRACEPTION
     Dosage: 1.5 MILLIGRAM DAILY;
     Route: 048
     Dates: start: 20140227, end: 20140227
  2. ZOLOFT [Concomitant]
     Indication: DEPRESSION

REACTIONS (4)
  - Haematochezia [Unknown]
  - Diarrhoea [Unknown]
  - Menstruation irregular [Unknown]
  - Dysmenorrhoea [Unknown]
